FAERS Safety Report 18185904 (Version 1)
Quarter: 2020Q3

REPORT INFORMATION
  Report Type: Spontaneous
  Country: JP (occurrence: JP)
  Receive Date: 20200824
  Receipt Date: 20200824
  Transmission Date: 20201103
  Serious: Yes (Death)
  Sender: FDA-Public Use
  Company Number: JP-UCBSA-2020032333

PATIENT
  Age: 86 Year
  Sex: Male
  Weight: 34 kg

DRUGS (4)
  1. YUNASUPIN [Suspect]
     Active Substance: AMPICILLIN SODIUM\SULBACTAM SODIUM
     Indication: PRODUCT USED FOR UNKNOWN INDICATION
     Dosage: 9 GRAM DAILY
     Route: 041
     Dates: start: 20190806, end: 20190826
  2. YUNASUPIN [Suspect]
     Active Substance: AMPICILLIN SODIUM\SULBACTAM SODIUM
     Dosage: 9 GRAM DAILY
     Route: 041
     Dates: start: 20190902, end: 20190912
  3. ALEVIATIN [PHENYTOIN SODIUM] [Suspect]
     Active Substance: PHENYTOIN SODIUM
     Indication: PRODUCT USED FOR UNKNOWN INDICATION
     Dosage: 250MG DAILY
     Route: 041
     Dates: start: 20190827, end: 20190924
  4. E KEPPRA [Suspect]
     Active Substance: LEVETIRACETAM
     Indication: EPILEPSY
     Dosage: 1000MG DAILY
     Route: 041
     Dates: start: 20190816, end: 20190826

REACTIONS (2)
  - Cytopenia [Fatal]
  - Infection [Fatal]

NARRATIVE: CASE EVENT DATE: 20190921
